FAERS Safety Report 21806381 (Version 1)
Quarter: 2023Q1

REPORT INFORMATION
  Report Type: Spontaneous
  Country: PT (occurrence: PT)
  Receive Date: 20230102
  Receipt Date: 20230102
  Transmission Date: 20230418
  Serious: Yes (Life-Threatening, Other)
  Sender: FDA-Public Use
  Company Number: None

PATIENT
  Age: 50 Year
  Sex: Female

DRUGS (4)
  1. DOCETAXEL [Suspect]
     Active Substance: DOCETAXEL
     Indication: Breast cancer
     Dosage: UNKNOWN
     Route: 042
     Dates: start: 20220829
  2. CYCLOPHOSPHAMIDE [Suspect]
     Active Substance: CYCLOPHOSPHAMIDE
     Indication: Breast cancer
     Dosage: UNKNOWN
     Route: 042
     Dates: start: 20220529, end: 20220729
  3. DOXORUBICIN [Suspect]
     Active Substance: DOXORUBICIN
     Indication: Breast cancer
     Dosage: UNKNOWN
     Route: 042
     Dates: start: 20220529, end: 20220729
  4. HERZUMA [Suspect]
     Active Substance: TRASTUZUMAB-PKRB
     Indication: Breast cancer
     Dosage: UNKNOWN
     Route: 042
     Dates: start: 20220829

REACTIONS (7)
  - Cholestasis [Unknown]
  - Hyperferritinaemia [Unknown]
  - Hypertriglyceridaemia [Unknown]
  - Neurological symptom [Unknown]
  - High density lipoprotein increased [Unknown]
  - Lipidosis [Unknown]
  - Haemophagocytic lymphohistiocytosis [Recovered/Resolved]

NARRATIVE: CASE EVENT DATE: 20220905
